FAERS Safety Report 4754159-7 (Version None)
Quarter: 2005Q3

REPORT INFORMATION
  Report Type: 
  Country: None (occurrence: None)
  Receive Date: 20050826
  Receipt Date: 20030905
  Transmission Date: 20060218
  Serious: Yes (Other)
  Sender: FDA-Public Use
  Company Number: JP-ABBOTT-05P-087-0306517-00

PATIENT
  Age: 86 Year
  Sex: Female

DRUGS (4)
  1. FERO GRADUMET [Suspect]
     Indication: IRON DEFICIENCY ANAEMIA
     Route: 048
     Dates: start: 20030618, end: 20030814
  2. CALCIUM L-ASPARTATE [Concomitant]
     Indication: DRUG USE FOR UNKNOWN INDICATION
     Route: 048
  3. RANITIDINE HYDROCHLORIDE [Concomitant]
     Indication: DRUG USE FOR UNKNOWN INDICATION
     Route: 048
  4. PREDNISOLONE [Concomitant]
     Indication: DRUG USE FOR UNKNOWN INDICATION
     Route: 048
     Dates: start: 20030716, end: 20030804

REACTIONS (3)
  - HAEMATEMESIS [None]
  - OESOPHAGEAL DISORDER [None]
  - VOMITING [None]
